FAERS Safety Report 7973208-6 (Version None)
Quarter: 2011Q4

REPORT INFORMATION
  Report Type: 
  Country: None (occurrence: None)
  Receive Date: 20111213
  Receipt Date: 20111201
  Transmission Date: 20120403
  Serious: Yes (Other)
  Sender: FDA-Public Use
  Company Number: PHEH2011US010672

PATIENT
  Sex: Female

DRUGS (9)
  1. DIOVAN [Suspect]
     Indication: HYPERTENSION
     Dosage: 160 MG, QD
  2. FUROSEMIDE [Concomitant]
     Indication: BLOOD PRESSURE
     Dosage: UNK
  3. HYDRALAZINE HCL [Suspect]
     Dosage: 25 MG, TID
  4. METOPROLOL SUCCINATE [Concomitant]
     Dosage: 50 MG, UNK
  5. VYTORIN [Concomitant]
     Dosage: 40 MG, QD
  6. HYDROXYCHLOROQUINE [Concomitant]
     Indication: ARTHRITIS
     Dosage: 200 MG, BID
  7. URSODIOL [Concomitant]
     Dosage: 300 MG, TID
  8. VITAMIN D [Concomitant]
     Dosage: 1.25 MG, QW
  9. AMLODIPINE BESYLATE [Concomitant]
     Indication: BLOOD PRESSURE
     Dosage: 5 MG, QD

REACTIONS (2)
  - PANCREATIC CARCINOMA [None]
  - MALAISE [None]
